FAERS Safety Report 13180139 (Version 2)
Quarter: 2018Q2

REPORT INFORMATION
  Report Type: Spontaneous
  Country: TR (occurrence: TR)
  Receive Date: 20170202
  Receipt Date: 20180423
  Transmission Date: 20180711
  Serious: Yes (Life-Threatening, Hospitalization, Other)
  Sender: FDA-Public Use
  Company Number: TR-LUPIN PHARMACEUTICALS INC.-2016-04137

PATIENT
  Age: 29 Year
  Sex: Female

DRUGS (4)
  1. ESCITALOPRAM [Interacting]
     Active Substance: ESCITALOPRAM OXALATE
     Indication: SUICIDE ATTEMPT
     Dosage: 1400 MG, QD
     Route: 065
  2. ESCITALOPRAM [Suspect]
     Active Substance: ESCITALOPRAM OXALATE
     Indication: DEPRESSION
     Dosage: 20 MG, QD
     Route: 065
  3. MOCLOBEMIDE [Interacting]
     Active Substance: MOCLOBEMIDE
     Indication: DEPRESSION
     Dosage: 300 MG, UNK
     Route: 065
  4. MOCLOBEMIDE [Interacting]
     Active Substance: MOCLOBEMIDE
     Indication: SUICIDE ATTEMPT
     Dosage: 6400 MG, QD
     Route: 065

REACTIONS (5)
  - Drug interaction [Recovered/Resolved]
  - Serotonin syndrome [Recovered/Resolved]
  - Overdose [Recovered/Resolved]
  - Rhabdomyolysis [Recovered/Resolved]
  - Suicide attempt [Unknown]
